FAERS Safety Report 7060921-0 (Version None)
Quarter: 2010Q4

REPORT INFORMATION
  Report Type: 
  Country: None (occurrence: None)
  Receive Date: 20101026
  Receipt Date: 20101019
  Transmission Date: 20110411
  Serious: Yes (Other)
  Sender: FDA-Public Use
  Company Number: US-AMGEN-QUU432612

PATIENT
  Sex: Female

DRUGS (3)
  1. NPLATE [Suspect]
     Indication: IDIOPATHIC THROMBOCYTOPENIC PURPURA
     Dosage: 1 A?G/KG, UNK
     Dates: start: 20100622, end: 20100622
  2. NPLATE [Suspect]
     Dates: start: 20100622
  3. CORTICOSTEROID NOS [Concomitant]
     Dosage: 1 A?G/KG, UNK
     Dates: start: 20080925

REACTIONS (4)
  - CEREBRAL INFARCTION [None]
  - HYPOAESTHESIA [None]
  - PARAESTHESIA [None]
  - THALAMIC INFARCTION [None]
